FAERS Safety Report 6346988-3 (Version None)
Quarter: 2009Q3

REPORT INFORMATION
  Report Type: 
  Country: None (occurrence: None)
  Receive Date: 20090910
  Receipt Date: 20070920
  Transmission Date: 20100115
  Serious: Yes (Hospitalization, Other)
  Sender: FDA-Public Use
  Company Number: US-ASTRAZENECA-2007UW16846

PATIENT
  Age: 49 Year
  Sex: Female

DRUGS (27)
  1. SEROQUEL [Suspect]
     Indication: SLEEP DISORDER
     Route: 048
     Dates: start: 19990101
  2. SEROQUEL [Suspect]
     Indication: INSOMNIA
     Route: 048
     Dates: start: 19990101
  3. SEROQUEL [Suspect]
     Dosage: 10-100 MG
     Route: 048
     Dates: start: 20040903
  4. SEROQUEL [Suspect]
     Dosage: 10-100 MG
     Route: 048
     Dates: start: 20040903
  5. HUMULIN 70/30 [Concomitant]
     Dosage: 20-50 UNITS
     Dates: start: 19970717
  6. PREVACID [Concomitant]
     Dates: start: 20040810
  7. ACTOS [Concomitant]
     Dates: start: 20061023
  8. LISINOPRIL [Concomitant]
     Route: 048
     Dates: start: 20040810
  9. PREMARIN [Concomitant]
     Route: 048
     Dates: start: 20040810
  10. REGLAN [Concomitant]
     Route: 048
     Dates: start: 20061023
  11. NOVOLOG [Concomitant]
     Dosage: 2 UNITS
     Route: 058
     Dates: start: 20070527
  12. LANTUS [Concomitant]
     Dosage: 8 UNITS
     Route: 058
     Dates: start: 20070527
  13. LORTAB [Concomitant]
     Dates: start: 20040810
  14. XANAX [Concomitant]
     Dosage: 3-4 MG DAILY
     Dates: start: 20050807
  15. CELEXA [Concomitant]
     Indication: DEPRESSION
     Dates: start: 20040903
  16. BUSPAR [Concomitant]
     Dates: start: 20040903
  17. ASPIRIN [Concomitant]
     Route: 048
     Dates: start: 20070525
  18. ZETIA [Concomitant]
     Route: 048
     Dates: start: 20070525
  19. SINGULAIR [Concomitant]
     Route: 048
     Dates: start: 20070525
  20. NAPROXEN [Concomitant]
     Route: 048
     Dates: start: 20070525
  21. PRILOSEC [Concomitant]
     Route: 048
     Dates: start: 20070525
  22. ZOCOR [Concomitant]
     Route: 048
     Dates: start: 20070525
  23. TRAZODONE [Concomitant]
     Route: 048
     Dates: start: 20070525
  24. METHADONE [Concomitant]
     Indication: PAIN
     Dosage: 20 MG EVERY 6-8 HRS
     Route: 048
     Dates: start: 20070525
  25. FLEXERIL [Concomitant]
     Indication: MUSCLE SPASMS
     Route: 048
     Dates: start: 20070525
  26. AVANDAMET [Concomitant]
     Dates: start: 20070525
  27. VYTORIN [Concomitant]
     Dates: start: 20070525

REACTIONS (7)
  - DIABETES MELLITUS [None]
  - DIABETIC FOOT [None]
  - DIABETIC NEUROPATHY [None]
  - DIABETIC VASCULAR DISORDER [None]
  - HYPOGLYCAEMIA [None]
  - TYPE 2 DIABETES MELLITUS [None]
  - VISION BLURRED [None]
